FAERS Safety Report 5076693-5 (Version None)
Quarter: 2006Q3

REPORT INFORMATION
  Report Type: 
  Country: None (occurrence: None)
  Receive Date: 20060810
  Receipt Date: 20060609
  Transmission Date: 20061208
  Serious: Yes (Death)
  Sender: FDA-Public Use
  Company Number: GB-BRACCO-BRO-010263

PATIENT
  Sex: Female

DRUGS (11)
  1. NIOPAM [Suspect]
     Indication: ARTERIOVENOUS FISTULA SITE COMPLICATION
     Route: 042
     Dates: start: 20060601, end: 20060601
  2. NIOPAM [Suspect]
     Route: 042
     Dates: start: 20060601, end: 20060601
  3. ATROVASTATIN [Concomitant]
     Route: 050
  4. BECLOMETHASONE 100 [Concomitant]
     Route: 050
  5. OMEPRAZOLE [Concomitant]
     Route: 050
  6. PILOCARPINE 2% [Concomitant]
     Route: 031
  7. RIMEXOLONE 1% [Concomitant]
     Route: 031
  8. FUROSEMIDE [Concomitant]
     Route: 050
  9. ALLOPURINOL [Concomitant]
     Route: 050
  10. LERCANIDIPINE [Concomitant]
     Route: 050
  11. IRBESARTAN [Concomitant]
     Route: 050

REACTIONS (1)
  - ANAPHYLACTIC REACTION [None]
